FAERS Safety Report 5497534-8 (Version None)
Quarter: 2007Q4

REPORT INFORMATION
  Report Type: 
  Country: None (occurrence: None)
  Receive Date: 20071025
  Receipt Date: 20061204
  Transmission Date: 20080405
  Serious: No
  Sender: FDA-Public Use
  Company Number: A0630260A

PATIENT
  Age: 66 Year
  Sex: Male

DRUGS (4)
  1. ADVAIR DISKUS 100/50 [Suspect]
     Indication: ASTHMA
     Dosage: 250MCG TWICE PER DAY
     Route: 055
     Dates: start: 20061118, end: 20061130
  2. PREDNISONE [Concomitant]
  3. OMNICEF [Concomitant]
  4. ASMANEX TWISTHALER [Concomitant]

REACTIONS (2)
  - APHONIA [None]
  - FUNGAL INFECTION [None]
